FAERS Safety Report 5186779-2 (Version None)
Quarter: 2006Q4

REPORT INFORMATION
  Report Type: 
  Country: None (occurrence: None)
  Receive Date: 20061213
  Receipt Date: 20061204
  Transmission Date: 20070319
  Serious: Yes (Other)
  Sender: FDA-Public Use
  Company Number: S06-USA-04450-01

PATIENT
  Age: 42 Year
  Sex: Male

DRUGS (4)
  1. CELEXA [Suspect]
     Indication: ANXIETY
     Dates: start: 20050601
  2. CELEXA [Suspect]
     Indication: DEPRESSED MOOD
     Dates: start: 20050601
  3. CELEXA [Suspect]
     Indication: PALPITATIONS
     Dates: start: 20050601
  4. BLOOD PRESSURE MEDICATION (NOS) [Concomitant]

REACTIONS (2)
  - MALAISE [None]
  - RENAL DISORDER [None]
